FAERS Safety Report 11688194 (Version 2)
Quarter: 2015Q4

REPORT INFORMATION
  Report Type: Spontaneous
  Country: CH (occurrence: CH)
  Receive Date: 20151030
  Receipt Date: 20151105
  Transmission Date: 20160304
  Serious: Yes (Hospitalization)
  Sender: FDA-Public Use
  Company Number: CH-ASTRAZENECA-2015SF04646

PATIENT
  Age: 76 Year
  Sex: Male

DRUGS (29)
  1. CRESTOR [Concomitant]
     Active Substance: ROSUVASTATIN CALCIUM
  2. CONCOR [Concomitant]
     Active Substance: BISOPROLOL FUMARATE
  3. HEPARIN SODIUM. [Concomitant]
     Active Substance: HEPARIN SODIUM
     Dates: start: 20150705
  4. DIPIPERON [Concomitant]
     Active Substance: PIPAMPERONE
     Dates: start: 20150723, end: 20150723
  5. NOVALGIN [Concomitant]
     Active Substance: METAMIZOLE SODIUM
     Dates: start: 20150704, end: 20150706
  6. ACTRAPID [Concomitant]
     Active Substance: INSULIN HUMAN
  7. MYDOCALM [Concomitant]
     Active Substance: TOLPERISONE
  8. CUBICIN [Suspect]
     Active Substance: DAPTOMYCIN
     Indication: PRODUCT USED FOR UNKNOWN INDICATION
     Route: 040
     Dates: start: 20150724, end: 20150727
  9. CIPROXIN [Suspect]
     Active Substance: CIPROFLOXACIN
     Indication: PRODUCT USED FOR UNKNOWN INDICATION
     Route: 065
     Dates: start: 20150721, end: 20150804
  10. EPINEPHRINE. [Concomitant]
     Active Substance: EPINEPHRINE
     Dates: start: 20150714, end: 20150716
  11. CORDARONE [Concomitant]
     Active Substance: AMIODARONE HYDROCHLORIDE
     Dates: start: 20150711, end: 20150718
  12. DIFLUCAN [Suspect]
     Active Substance: FLUCONAZOLE
     Indication: PRODUCT USED FOR UNKNOWN INDICATION
     Route: 040
     Dates: start: 20150713, end: 20150720
  13. EBRANTIL [Concomitant]
     Active Substance: URAPIDIL
     Dates: start: 20150708, end: 20150711
  14. TEMESTA [Concomitant]
     Active Substance: LORAZEPAM
     Dates: start: 20150723
  15. PANTOZOL [Concomitant]
     Active Substance: PANTOPRAZOLE SODIUM
     Dates: start: 2015
  16. MERONEM [Suspect]
     Active Substance: MEROPENEM
     Indication: PRODUCT USED FOR UNKNOWN INDICATION
     Route: 040
     Dates: start: 20150711, end: 20150720
  17. TAZOBAC [Suspect]
     Active Substance: PIPERACILLIN SODIUM\TAZOBACTAM SODIUM
     Indication: PRODUCT USED FOR UNKNOWN INDICATION
     Route: 042
     Dates: start: 20150704, end: 20150711
  18. PRADIF [Concomitant]
     Active Substance: TAMSULOSIN HYDROCHLORIDE
  19. SOLU-CORTEF [Concomitant]
     Active Substance: HYDROCORTISONE SODIUM SUCCINATE
     Dates: start: 20150705, end: 20150706
  20. SUFENTANIL [Concomitant]
     Active Substance: SUFENTANIL
     Dates: start: 20150705, end: 20150804
  21. NALOXONE [Concomitant]
     Active Substance: NALOXONE
     Dates: start: 20150708, end: 20150721
  22. MIANSERIN HYDROCHLORIDE [Concomitant]
     Active Substance: MIANSERIN HYDROCHLORIDE
  23. ZESTRIL [Concomitant]
     Active Substance: LISINOPRIL
  24. DOLOPHINE HYDROCHLORIDE [Concomitant]
     Active Substance: METHADONE HYDROCHLORIDE
     Dates: end: 20150711
  25. CONDROSULF [Concomitant]
     Active Substance: CHONDROITIN SULFATE (CHICKEN)
  26. ACETAMINOPHEN. [Concomitant]
     Active Substance: ACETAMINOPHEN
     Dates: start: 20150704, end: 20150706
  27. VANCOMYCIN [Suspect]
     Active Substance: VANCOMYCIN
     Indication: PRODUCT USED FOR UNKNOWN INDICATION
     Route: 042
     Dates: start: 20150704, end: 20150723
  28. NOREPINEPHRINE [Concomitant]
     Active Substance: NOREPINEPHRINE\NOREPINEPHRINE BITARTRATE
     Dates: start: 20150705, end: 20150718
  29. NEOSTIGMINE METHYLSULFATE. [Concomitant]
     Active Substance: NEOSTIGMINE METHYLSULFATE
     Dates: start: 20150707, end: 20150719

REACTIONS (4)
  - Transaminases abnormal [Unknown]
  - Eosinophilia [Recovered/Resolved]
  - Rash [Unknown]
  - Drug reaction with eosinophilia and systemic symptoms [Recovered/Resolved]

NARRATIVE: CASE EVENT DATE: 201507
